FAERS Safety Report 5980190-X (Version None)
Quarter: 2008Q4

REPORT INFORMATION
  Report Type: 
  Country: None (occurrence: None)
  Receive Date: 20081202
  Receipt Date: 20081202
  Transmission Date: 20090506
  Serious: Yes (Life-Threatening, Hospitalization, Other)
  Sender: FDA-Public Use
  Company Number: None

PATIENT
  Age: 18 Year
  Sex: Female
  Weight: 57.6068 kg

DRUGS (1)
  1. KINERET [Suspect]
     Indication: JUVENILE ARTHRITIS
     Dosage: ONE SYRINGE DAILY SQ
     Route: 058
     Dates: start: 20020601, end: 20071207

REACTIONS (3)
  - ACUTE LYMPHOCYTIC LEUKAEMIA [None]
  - CONTUSION [None]
  - PLATELET COUNT DECREASED [None]
